FAERS Safety Report 24198826 (Version 1)
Quarter: 2024Q3

REPORT INFORMATION
  Report Type: Spontaneous
  Country: BR (occurrence: BR)
  Receive Date: 20240812
  Receipt Date: 20240812
  Transmission Date: 20241017
  Serious: Yes (Other)
  Sender: CELLTRION
  Company Number: BR-CELLTRION INC.-2022BR019343

PATIENT

DRUGS (4)
  1. INFLIXIMAB [Suspect]
     Active Substance: INFLIXIMAB
     Indication: Colitis ulcerative
     Dosage: 3,5 AMPOULES EVERY MONTH
     Route: 042
     Dates: start: 20220908
  2. INFLIXIMAB [Suspect]
     Active Substance: INFLIXIMAB
     Dosage: 3,5 AMPOULES EVERY MONTH
     Route: 042
     Dates: start: 20231017
  3. INFLIXIMAB [Suspect]
     Active Substance: INFLIXIMAB
     Dosage: UNK
     Route: 042
     Dates: start: 20231212
  4. INFLIXIMAB [Suspect]
     Active Substance: INFLIXIMAB
     Dosage: 3, 5 AMPOULES/ 3 AND A HALF VIALS (350 MG) EVERY 4 WEEKS
     Route: 042
     Dates: start: 20240529

REACTIONS (21)
  - Bone pain [Recovered/Resolved]
  - Skin papilloma [Recovered/Resolved]
  - Arthralgia [Recovered/Resolved]
  - Disease recurrence [Unknown]
  - Weight increased [Unknown]
  - Tooth extraction [Unknown]
  - Feeling hot [Unknown]
  - Rhinorrhoea [Unknown]
  - Paraesthesia [Unknown]
  - Swelling [Unknown]
  - Blister [Unknown]
  - Erythema [Unknown]
  - Haemorrhage [Unknown]
  - Pyrexia [Recovering/Resolving]
  - Oropharyngeal pain [Unknown]
  - Drug hypersensitivity [Unknown]
  - Feeling cold [Unknown]
  - Intentional dose omission [Unknown]
  - Therapy interrupted [Unknown]
  - Intentional product use issue [Unknown]
  - Overdose [Unknown]

NARRATIVE: CASE EVENT DATE: 20220908
